FAERS Safety Report 12873338 (Version 1)
Quarter: 2016Q4

REPORT INFORMATION
  Report Type: Spontaneous
  Country: US (occurrence: US)
  Receive Date: 20161021
  Receipt Date: 20161021
  Transmission Date: 20170207
  Serious: No
  Sender: FDA-Public Use
  Company Number: US-ALLERGAN-1518139US

PATIENT
  Sex: Female

DRUGS (5)
  1. CRESTOR [Concomitant]
     Active Substance: ROSUVASTATIN CALCIUM
     Indication: BLOOD CHOLESTEROL INCREASED
     Dosage: 10 MG, QD
     Route: 048
  2. FML [Suspect]
     Active Substance: FLUOROMETHOLONE
     Indication: HYPERSENSITIVITY
     Dosage: UNK, BID
     Route: 061
     Dates: start: 201503, end: 201503
  3. FML [Suspect]
     Active Substance: FLUOROMETHOLONE
     Indication: EYELIDS PRURITUS
  4. ZYRTEC [Concomitant]
     Active Substance: CETIRIZINE HYDROCHLORIDE
     Indication: SEASONAL ALLERGY
     Dosage: UNK
     Route: 048
  5. FML [Suspect]
     Active Substance: FLUOROMETHOLONE
     Indication: ERYTHEMA OF EYELID

REACTIONS (5)
  - Foreign body sensation in eyes [Not Recovered/Not Resolved]
  - Off label use [Unknown]
  - Accidental exposure to product [Unknown]
  - Drug ineffective [Unknown]
  - Drug administered at inappropriate site [Unknown]
